FAERS Safety Report 9423207 (Version 1)
Quarter: 2013Q3

REPORT INFORMATION
  Report Type: Spontaneous
  Country: NZ (occurrence: NZ)
  Receive Date: 20130726
  Receipt Date: 20130726
  Transmission Date: 20140515
  Serious: Yes (Other)
  Sender: FDA-Public Use
  Company Number: NZ-BAXTER-2013BAX028781

PATIENT
  Age: 68 Year
  Sex: Female

DRUGS (5)
  1. SODIUM CHLORIDE, 0.9%, SOLUTION FOR INFUSION [Suspect]
     Indication: PRODUCT USED FOR UNKNOWN INDICATION
     Route: 042
     Dates: start: 20130703
  2. WATER FOR INJECTION, 100%, SOLUTION FOR INFUSION (BOTTLE) [Suspect]
     Indication: PRODUCT USED FOR UNKNOWN INDICATION
     Route: 042
     Dates: start: 20130703
  3. ETOPOSIDE [Suspect]
     Indication: PRODUCT USED FOR UNKNOWN INDICATION
     Route: 042
     Dates: start: 20130703
  4. ETOPOSIDE [Suspect]
     Route: 042
     Dates: start: 20130703
  5. ETOPOSIDE [Suspect]
     Route: 042
     Dates: start: 20130703

REACTIONS (3)
  - Dyspnoea [Unknown]
  - Skin discolouration [Unknown]
  - Chest pain [Unknown]
